FAERS Safety Report 10176414 (Version 1)
Quarter: 2014Q2

REPORT INFORMATION
  Report Type: Spontaneous
  Country: GB (occurrence: GB)
  Receive Date: 20140516
  Receipt Date: 20140516
  Transmission Date: 20141212
  Serious: Yes (Hospitalization)
  Sender: FDA-Public Use
  Company Number: PHHY2014GB058413

PATIENT
  Age: 52 Year
  Sex: Female
  Weight: 53.6 kg

DRUGS (6)
  1. CO-CODAMOL [Suspect]
     Indication: PAIN
     Dosage: 6 DF, QD
     Route: 048
  2. FLUOXETINE [Concomitant]
     Dosage: 20 MG, UNK
  3. HYDROXYCHLOROQUINE [Concomitant]
     Indication: RHEUMATOID ARTHRITIS
     Dosage: 200 MG, UNK
     Route: 048
     Dates: start: 201207, end: 20131215
  4. PREDNISOLONE [Concomitant]
  5. AMITRIPTYLINE [Concomitant]
  6. LEFLUNOMIDE [Concomitant]
     Dosage: 10 MG, QD

REACTIONS (3)
  - Dysgeusia [Recovered/Resolved]
  - Dry mouth [Recovered/Resolved]
  - Somnolence [Recovered/Resolved]
